FAERS Safety Report 7487297-9 (Version None)
Quarter: 2011Q2

REPORT INFORMATION
  Report Type: 
  Country: None (occurrence: None)
  Receive Date: 20110518
  Receipt Date: 20110407
  Transmission Date: 20111010
  Serious: Yes (Other)
  Sender: FDA-Public Use
  Company Number: US-BAYER-201018636NA

PATIENT
  Age: 46 Year
  Sex: Female
  Weight: 72.562 kg

DRUGS (8)
  1. DIURETICS [Concomitant]
  2. POTASSIUM [POTASSIUM] [Concomitant]
  3. YASMIN [Suspect]
     Route: 048
     Dates: start: 20090101
  4. DROSPIRENONE AND ETHINYL ESTRADIOL [Suspect]
     Indication: DYSMENORRHOEA
     Dosage: UNK
     Route: 048
     Dates: start: 20080101, end: 20090101
  5. LIPITOR [Concomitant]
  6. YASMIN [Suspect]
     Indication: DYSMENORRHOEA
     Dosage: UNK
     Route: 048
     Dates: start: 20040101, end: 20080315
  7. ASCORBIC ACID [Concomitant]
  8. ALBUTEROL [Concomitant]

REACTIONS (10)
  - WEIGHT INCREASED [None]
  - ABDOMINAL PAIN [None]
  - NAUSEA [None]
  - GALLBLADDER DISORDER [None]
  - BILIARY DYSKINESIA [None]
  - GALLBLADDER CHOLESTEROLOSIS [None]
  - CONVULSION [None]
  - INCISIONAL HERNIA [None]
  - ABDOMINAL DISTENSION [None]
  - VOMITING [None]
